FAERS Safety Report 9005857 (Version 1)
Quarter: 2013Q1

REPORT INFORMATION
  Report Type: Spontaneous
  Country: US (occurrence: US)
  Receive Date: 20130109
  Receipt Date: 20130109
  Transmission Date: 20140127
  Serious: No
  Sender: FDA-Public Use
  Company Number: US-ASTRAZENECA-2012SE94408

PATIENT
  Age: 68 Year
  Sex: Female

DRUGS (2)
  1. SYMBICORT  PMDI [Suspect]
     Indication: ASTHMA
     Dosage: 160 MCG 2 PUFFS,TWO TIMES A DAY
     Route: 055
  2. RESCUE INHALER [Concomitant]

REACTIONS (5)
  - Exercise tolerance decreased [Unknown]
  - Productive cough [Unknown]
  - Dyspnoea exertional [Unknown]
  - Anxiety [Unknown]
  - Intentional drug misuse [Unknown]
